FAERS Safety Report 17044051 (Version 1)
Quarter: 2019Q4

REPORT INFORMATION
  Report Type: Spontaneous
  Country: US (occurrence: US)
  Receive Date: 20191115
  Receipt Date: 20191115
  Transmission Date: 20200122
  Serious: Yes (Life-Threatening, Disabling)
  Sender: FDA-Public Use
  Company Number: None

PATIENT
  Age: 25 Year
  Sex: Female
  Weight: 105.75 kg

DRUGS (3)
  1. TOPAMAX [Suspect]
     Active Substance: TOPIRAMATE
     Indication: MIGRAINE
     Dosage: ?          QUANTITY:1 CAPSULE(S);?
     Route: 048
     Dates: start: 20191108, end: 20191113
  2. IBUPROFEN. [Concomitant]
     Active Substance: IBUPROFEN
  3. TOPAMAX [Suspect]
     Active Substance: TOPIRAMATE
     Indication: BIPOLAR II DISORDER
     Dosage: ?          QUANTITY:1 CAPSULE(S);?
     Route: 048
     Dates: start: 20191108, end: 20191113

REACTIONS (11)
  - Cold sweat [None]
  - Nasal congestion [None]
  - White blood cell count increased [None]
  - Impaired work ability [None]
  - Decreased activity [None]
  - Cough [None]
  - Thirst [None]
  - Syncope [None]
  - Red blood cell count increased [None]
  - Nausea [None]
  - Heart rate increased [None]

NARRATIVE: CASE EVENT DATE: 20191111
